FAERS Safety Report 21641443 (Version 1)
Quarter: 2022Q4

REPORT INFORMATION
  Report Type: Report from Study
  Country: CN (occurrence: CN)
  Receive Date: 20221125
  Receipt Date: 20221125
  Transmission Date: 20230113
  Serious: Yes (Death)
  Sender: FDA-Public Use
  Company Number: CN-JNJFOC-20221141186

PATIENT
  Age: 68 Year
  Sex: Female

DRUGS (1)
  1. IMBRUVICA [Suspect]
     Active Substance: IBRUTINIB
     Indication: Mantle cell lymphoma
     Route: 048

REACTIONS (1)
  - Multiple organ dysfunction syndrome [Fatal]
